FAERS Safety Report 13234183 (Version 1)
Quarter: 2017Q1

REPORT INFORMATION
  Report Type: Spontaneous
  Country: US (occurrence: US)
  Receive Date: 20170215
  Receipt Date: 20170215
  Transmission Date: 20170428
  Serious: Yes (Hospitalization)
  Sender: FDA-Public Use
  Company Number: None

PATIENT
  Age: 67 Year
  Sex: Female

DRUGS (3)
  1. CIPROFLOXACIN. [Suspect]
     Active Substance: CIPROFLOXACIN
  2. MEROPENEM. [Suspect]
     Active Substance: MEROPENEM
  3. PANTOPRAZOLE [Suspect]
     Active Substance: PANTOPRAZOLE SODIUM

REACTIONS (4)
  - Clostridium test positive [None]
  - Hypoalbuminaemia [None]
  - Electrolyte imbalance [None]
  - Hypotension [None]

NARRATIVE: CASE EVENT DATE: 20150201
